FAERS Safety Report 8596796-8 (Version None)
Quarter: 2012Q3

REPORT INFORMATION
  Report Type: 
  Country: None (occurrence: None)
  Receive Date: 20120815
  Receipt Date: 20120731
  Transmission Date: 20120928
  Serious: No
  Sender: FDA-Public Use
  Company Number: US-B.I. PHARMACEUTICALS,INC./RIDGEFIELD-2012-BP-17195BP

PATIENT
  Sex: Male
  Weight: 92.53 kg

DRUGS (14)
  1. XARELTO [Suspect]
     Indication: ATRIAL FIBRILLATION
     Dosage: 20 MG
     Route: 048
     Dates: start: 20120717
  2. FISH OIL (FISH OIL) [Concomitant]
     Dosage: 2000 MG
     Route: 048
  3. PRILOSEC [Concomitant]
     Dosage: 40 MG
  4. METFFORMIN HYDROCHLORIDE [Concomitant]
     Indication: TYPE 2 DIABETES MELLITUS
     Dosage: 1000 MG
     Route: 048
  5. METFFORMIN HYDROCHLORIDE [Concomitant]
     Dosage: 500 MG
     Route: 048
  6. ALLOPURINOL [Concomitant]
     Dosage: 300 MG
     Route: 048
  7. NITROGLYCERIN [Concomitant]
     Indication: ANGINA PECTORIS
  8. SOTALOL HYDROCHLORIDE [Concomitant]
     Indication: ATRIAL FIBRILLATION
     Dosage: 160 MG
     Route: 048
  9. XARELTO [Suspect]
     Indication: CEREBROVASCULAR ACCIDENT PROPHYLAXIS
  10. LISINOPRIL [Concomitant]
     Dosage: 20 MG
     Route: 048
  11. PRADAXA [Suspect]
     Indication: DEEP VEIN THROMBOSIS
     Dosage: 75 MG
     Route: 048
     Dates: start: 20120701
  12. PRADAXA [Suspect]
     Indication: ATRIAL FIBRILLATION
  13. XARELTO [Suspect]
     Indication: DEEP VEIN THROMBOSIS
     Dosage: 20 MG
     Route: 048
     Dates: start: 20120601, end: 20120701
  14. CRESTOR [Concomitant]
     Indication: BLOOD CHOLESTEROL ABNORMAL
     Dosage: 20 MCI

REACTIONS (3)
  - ANGINA PECTORIS [None]
  - INAPPROPRIATE SCHEDULE OF DRUG ADMINISTRATION [None]
  - FLATULENCE [None]
